APPROVED DRUG PRODUCT: ALLOPURINOL
Active Ingredient: ALLOPURINOL
Strength: 100MG
Dosage Form/Route: TABLET;ORAL
Application: A217748 | Product #001 | TE Code: AB
Applicant: HETERO LABS LTD UNIT V
Approved: Aug 3, 2023 | RLD: No | RS: No | Type: RX